FAERS Safety Report 4500313-9 (Version None)
Quarter: 2004Q4

REPORT INFORMATION
  Report Type: 
  Country: None (occurrence: None)
  Receive Date: 20041109
  Receipt Date: 20041027
  Transmission Date: 20050328
  Serious: No
  Sender: FDA-Public Use
  Company Number: MC200400749

PATIENT
  Age: 41 Year
  Sex: Female

DRUGS (1)
  1. ANGIOMAX (BIVALRUDIN) INJECTION [Suspect]
     Dosage: SEE IMAGE
     Route: 040
     Dates: start: 20041027, end: 20041027

REACTIONS (2)
  - CORONARY ARTERY DISSECTION [None]
  - MEDICATION ERROR [None]
